FAERS Safety Report 5898444-4 (Version None)
Quarter: 2008Q3

REPORT INFORMATION
  Report Type: 
  Country: None (occurrence: None)
  Receive Date: 20080925
  Receipt Date: 20071107
  Transmission Date: 20090109
  Serious: No
  Sender: FDA-Public Use
  Company Number: A0692287A

PATIENT
  Age: 37 Year
  Sex: Male

DRUGS (2)
  1. WELLBUTRIN XL [Suspect]
     Indication: DEPRESSION
     Dosage: 150MG PER DAY
     Route: 048
     Dates: start: 20071024, end: 20071106
  2. NO CONCURRENT MEDICATION [Concomitant]

REACTIONS (2)
  - RESPIRATORY DISORDER [None]
  - THROAT TIGHTNESS [None]
